FAERS Safety Report 14203775 (Version 3)
Quarter: 2018Q3

REPORT INFORMATION
  Report Type: Spontaneous
  Country: US (occurrence: US)
  Receive Date: 20171120
  Receipt Date: 20180727
  Transmission Date: 20181010
  Serious: No
  Sender: FDA-Public Use
  Company Number: US-PFIZER INC-2017495445

PATIENT
  Age: 62 Year
  Sex: Male

DRUGS (2)
  1. SUTENT [Suspect]
     Active Substance: SUNITINIB MALATE
     Dosage: 50 MG, CYCLIC (QD X 28 DAYS THEN OFF 14 DAYS)
     Route: 048
     Dates: start: 20170613, end: 201712
  2. SUTENT [Suspect]
     Active Substance: SUNITINIB MALATE
     Indication: RENAL CANCER
     Dosage: 50 MG, UNK
     Route: 048
     Dates: start: 20170607

REACTIONS (4)
  - Pain in extremity [Recovering/Resolving]
  - Neoplasm progression [Unknown]
  - Gait disturbance [Recovering/Resolving]
  - Blood pressure increased [Unknown]
